FAERS Safety Report 15570533 (Version 2)
Quarter: 2018Q4

REPORT INFORMATION
  Report Type: Report from Study
  Country: MX (occurrence: MX)
  Receive Date: 20181031
  Receipt Date: 20181128
  Transmission Date: 20190205
  Serious: Yes (Other)
  Sender: FDA-Public Use
  Company Number: PHHY2015MX001510

PATIENT
  Sex: Female

DRUGS (4)
  1. CO-DIOVAN [Suspect]
     Active Substance: HYDROCHLOROTHIAZIDE\VALSARTAN
     Dosage: 1 DF (HYDROCHLOROTHIAZIDE 25 MG AND VALSARTAN 160 MG), QD
     Route: 048
     Dates: start: 201803
  2. CO-DIOVAN [Suspect]
     Active Substance: HYDROCHLOROTHIAZIDE\VALSARTAN
     Indication: HYPERTENSION
     Dosage: 1 DF (HYDROCHLOROTHIAZIDE 12.5 MG AND VALSARTAN 80 MG), QD
     Route: 048
     Dates: start: 2000, end: 201803
  3. DAFLON [Concomitant]
     Indication: PERIPHERAL VASCULAR DISORDER
     Dosage: 1 DF, Q12H (APPROXIMATELY 2 YEARS AGO)
     Route: 065
  4. VALSARTAN. [Suspect]
     Active Substance: VALSARTAN
     Indication: HYPERTENSION
     Dosage: 1 DF, QD (STOP LESS THAN A MONTH AGO)
     Route: 048
     Dates: start: 201803

REACTIONS (15)
  - Nervousness [Recovered/Resolved]
  - Blood pressure increased [Recovered/Resolved]
  - Osteoporosis [Not Recovered/Not Resolved]
  - Abdominal discomfort [Unknown]
  - Blood calcium decreased [Unknown]
  - Poor quality sleep [Recovered/Resolved]
  - Skin papilloma [Recovered/Resolved]
  - Overweight [Unknown]
  - Weight decreased [Unknown]
  - Influenza [Recovering/Resolving]
  - Nasal congestion [Recovering/Resolving]
  - Cough [Recovering/Resolving]
  - Anxiety [Recovered/Resolved]
  - Feeding disorder [Unknown]
  - Blood cholesterol increased [Unknown]

NARRATIVE: CASE EVENT DATE: 2017
